FAERS Safety Report 9680663 (Version 7)
Quarter: 2020Q3

REPORT INFORMATION
  Report Type: Report from Study
  Country: US (occurrence: US)
  Receive Date: 20131111
  Receipt Date: 20200330
  Transmission Date: 20201105
  Serious: Yes (Death, Hospitalization)
  Sender: FDA-Public Use
  Company Number: US-JNJFOC-20131104395

PATIENT
  Age: 35 Year
  Sex: Male
  Weight: 73.09 kg

DRUGS (22)
  1. POTASSIUM CHLORIDE. [Concomitant]
     Active Substance: POTASSIUM CHLORIDE
     Dosage: 20 MEQ TWICE  A DAY
     Route: 065
  2. DOCUSATE [Concomitant]
     Active Substance: DOCUSATE
     Dosage: J?TUBE
     Route: 065
  3. REGULAR INSULIN [Concomitant]
     Active Substance: INSULIN NOS
     Dosage: 2 UNITS AT NIGHT AT 9 PM AND 3?4 SUBCUTANEOUS AT 3 AM.
     Route: 058
  4. CISAPRIDE [Suspect]
     Active Substance: CISAPRIDE
     Indication: GASTROOESOPHAGEAL REFLUX DISEASE
     Route: 065
     Dates: start: 20090713
  5. NOVOLOG [Concomitant]
     Active Substance: INSULIN ASPART
     Indication: DIABETES MELLITUS
     Dosage: 1 UNIT AT 7 AM; 8 UNITS BREAFAST, 3 UNITS LUNCH, 11 UNITS SUPPER
     Route: 058
  6. GRANISETRON HYDROCHLORIDE. [Concomitant]
     Active Substance: GRANISETRON HYDROCHLORIDE
     Indication: GASTROSTOMY
     Dosage: A MG G?TUBE
     Route: 065
  7. LEVEMIR [Concomitant]
     Active Substance: INSULIN DETEMIR
     Indication: DIABETES MELLITUS
     Dosage: 10 UNITS AT NIGHT AND 2 UNITS AT 7 AM
     Route: 058
  8. LEVEMIR [Concomitant]
     Active Substance: INSULIN DETEMIR
     Dosage: 10 UNITS AT NIGHT TIME
     Route: 065
  9. ISOPHANE INSULIN [Concomitant]
     Active Substance: INSULIN NOS
     Dosage: 10 UNITS AT BED TIME AT 11:00 PM
     Route: 065
  10. OMEPRAZOLE. [Concomitant]
     Active Substance: OMEPRAZOLE
     Dosage: J?TUBE
     Route: 065
  11. CEFEPIME [Concomitant]
     Active Substance: CEFEPIME HYDROCHLORIDE
     Dosage: J?TUBE
     Route: 065
  12. CISAPRIDE [Suspect]
     Active Substance: CISAPRIDE
     Indication: GASTROINTESTINAL MOTILITY DISORDER
  13. LEVEMIR [Concomitant]
     Active Substance: INSULIN DETEMIR
     Route: 058
  14. HUMALOG [Concomitant]
     Active Substance: INSULIN LISPRO
     Dosage: 18 UNIITS IN THE PM WITH SUPPER AND 2 UNITS AT 9 PM
     Route: 058
  15. NOVOLIN R [Concomitant]
     Active Substance: INSULIN HUMAN
     Indication: DIABETES MELLITUS
     Dosage: 3 UNITS SUPPER, 6 UNITS NIGHT
     Route: 058
  16. REGLAN [Concomitant]
     Active Substance: METOCLOPRAMIDE HYDROCHLORIDE
     Dosage: J?TUBE
     Route: 065
  17. VANCOMYCIN [Concomitant]
     Active Substance: VANCOMYCIN
     Dosage: J?TUBE
     Route: 065
  18. NORMAL SALINE [Concomitant]
     Active Substance: SODIUM CHLORIDE
     Dosage: 2 BAGS A DAY
     Route: 065
  19. POTASSIUM CHLORIDE. [Concomitant]
     Active Substance: POTASSIUM CHLORIDE
     Route: 065
  20. PROPULSID [Concomitant]
     Active Substance: CISAPRIDE
     Indication: JEJUNOSTOMY
     Dosage: BY J?TUBE
     Route: 065
  21. COUMADIN [Concomitant]
     Active Substance: WARFARIN SODIUM
     Dosage: A MG DAILY
     Route: 065
  22. TYLENOL [Concomitant]
     Active Substance: ACETAMINOPHEN
     Indication: PAIN
     Route: 065
     Dates: start: 20090622

REACTIONS (1)
  - Bacterial sepsis [Fatal]
